FAERS Safety Report 12399793 (Version 1)
Quarter: 2016Q2

REPORT INFORMATION
  Report Type: Other
  Country: IT (occurrence: IT)
  Receive Date: 20160524
  Receipt Date: 20160524
  Transmission Date: 20160815
  Serious: Yes (Life-Threatening, Hospitalization)
  Sender: FDA-Public Use
  Company Number: IT-ENDO PHARMACEUTICALS INC-2016-003297

PATIENT
  Age: 65 Year
  Sex: Female

DRUGS (1)
  1. IBUPROFEN TABLETS 600MG [Suspect]
     Active Substance: IBUPROFEN
     Indication: SPINAL PAIN
     Route: 065

REACTIONS (1)
  - Pulmonary embolism [Recovered/Resolved]
